FAERS Safety Report 21623819 (Version 1)
Quarter: 2022Q4

REPORT INFORMATION
  Report Type: Report from Study
  Country: US (occurrence: US)
  Receive Date: 20221121
  Receipt Date: 20221121
  Transmission Date: 20230112
  Serious: Yes (Hospitalization, Other)
  Sender: FDA-Public Use
  Company Number: US-BoehringerIngelheim-2021-BI-089397

PATIENT
  Age: 76 Year
  Sex: Male

DRUGS (2)
  1. OFEV [Suspect]
     Active Substance: NINTEDANIB
     Indication: Idiopathic pulmonary fibrosis
     Route: 048
     Dates: start: 20191112
  2. OFEV [Suspect]
     Active Substance: NINTEDANIB

REACTIONS (10)
  - Pulmonary haemorrhage [Unknown]
  - Coronary arterial stent insertion [Unknown]
  - Catheterisation cardiac [Unknown]
  - Abdominal discomfort [Not Recovered/Not Resolved]
  - COVID-19 [Unknown]
  - Peripheral swelling [Unknown]
  - Diarrhoea [Recovering/Resolving]
  - Gastric disorder [Recovering/Resolving]
  - Gastroenteritis viral [Recovering/Resolving]
  - Illness [Unknown]

NARRATIVE: CASE EVENT DATE: 20210101
